FAERS Safety Report 8719273 (Version 3)
Quarter: 2012Q4

REPORT INFORMATION
  Report Type: 
  Country: US (occurrence: US)
  Receive Date: 20120813
  Receipt Date: 20121128
  Transmission Date: 20130627
  Serious: Yes (Other)
  Sender: FDA-Public Use
  Company Number: US-009507513-1208USA003326

PATIENT
  Sex: Female
  Weight: 102.95 kg

DRUGS (9)
  1. SAPHRIS [Suspect]
     Indication: BIPOLAR DISORDER
     Dosage: 5 DF, Once
     Route: 060
  2. SAPHRIS [Suspect]
     Dosage: 5 mg, bid
     Route: 060
  3. ATRIPLA [Concomitant]
  4. CONCERTA [Concomitant]
  5. PROZAC [Concomitant]
  6. INDERAL [Concomitant]
  7. GABAPENTIN [Concomitant]
  8. TYLENOL [Concomitant]
  9. CODEINE [Concomitant]

REACTIONS (2)
  - Suicide attempt [Recovered/Resolved]
  - Overdose [Unknown]
